FAERS Safety Report 11550653 (Version 1)
Quarter: 2015Q3

REPORT INFORMATION
  Report Type: Spontaneous
  Country: US (occurrence: US)
  Receive Date: 20150903
  Receipt Date: 20150903
  Transmission Date: 20151125
  Serious: No
  Sender: FDA-Public Use
  Company Number: US-ELI_LILLY_AND_COMPANY-US201211004080

PATIENT
  Sex: Female

DRUGS (2)
  1. HUMALOG [Suspect]
     Active Substance: INSULIN LISPRO
     Indication: DIABETES MELLITUS
     Dosage: UNK, PRN
  2. LANTUS [Concomitant]
     Active Substance: INSULIN GLARGINE
     Dosage: UNK, QD

REACTIONS (8)
  - Malaise [Not Recovered/Not Resolved]
  - Vision blurred [Unknown]
  - Drug ineffective [Unknown]
  - Pyrexia [Not Recovered/Not Resolved]
  - Pain in extremity [Unknown]
  - Blood glucose increased [Unknown]
  - Chest discomfort [Unknown]
  - Stress [Unknown]

NARRATIVE: CASE EVENT DATE: 201211
